FAERS Safety Report 7475601-7 (Version None)
Quarter: 2011Q2

REPORT INFORMATION
  Report Type: 
  Country: None (occurrence: None)
  Receive Date: 20110512
  Receipt Date: 20110504
  Transmission Date: 20111010
  Serious: Yes (Death)
  Sender: FDA-Public Use
  Company Number: IT-CELGENEUS-083-21880-11050558

PATIENT

DRUGS (2)
  1. REVLIMID [Suspect]
     Indication: MULTIPLE MYELOMA
     Dosage: 25 MILLIGRAM
     Route: 048
     Dates: start: 20080501, end: 20101201
  2. REVLIMID [Suspect]
     Dosage: 10-15 MG DAY/EVERY OTHER DAY
     Route: 048
     Dates: start: 20080501, end: 20101201

REACTIONS (3)
  - NEUTROPENIA [None]
  - DEATH [None]
  - MULTIPLE MYELOMA [None]
